FAERS Safety Report 9408721 (Version 1)
Quarter: 2013Q3

REPORT INFORMATION
  Report Type: Spontaneous
  Country: US (occurrence: US)
  Receive Date: 20130718
  Receipt Date: 20130718
  Transmission Date: 20140515
  Serious: Yes (Other)
  Sender: FDA-Public Use
  Company Number: US-RB-056201-13

PATIENT
  Age: 38 Year
  Sex: Male

DRUGS (4)
  1. SUBOXONE TABLET [Suspect]
     Indication: DRUG DEPENDENCE
     Dosage: PRESCRIBED 16 MG DAILY, BUT SOMETIMES TAKES LESS (CUTTING)
     Route: 060
     Dates: start: 2001, end: 2007
  2. SUBOXONE FILM [Suspect]
     Indication: DRUG DEPENDENCE
     Dosage: PRESCRIBED 16 MG DAILY, BUT SOMETIMES TAKES LESS (CUTTING)
     Route: 060
     Dates: start: 2007, end: 2010
  3. SUBUTEX [Suspect]
     Indication: DRUG DEPENDENCE
     Dosage: PRESCRIBED 16 MG DAYLY, BUT SOMETIMES TAKES LESS (CUTTING)
     Route: 060
  4. BUPRENORPHINE GENERIC [Suspect]
     Indication: DRUG DEPENDENCE
     Dosage: PRESCRIBED 16 MG DAILY, BUT SOMETIMES TAKES LESS (CUTTING)
     Route: 060

REACTIONS (8)
  - Fall [Recovered/Resolved]
  - Rib fracture [Recovered/Resolved]
  - Intentional drug misuse [Not Recovered/Not Resolved]
  - Wrong technique in drug usage process [Not Recovered/Not Resolved]
  - Depression [Recovered/Resolved]
  - Pain [Recovered/Resolved]
  - Discomfort [Recovered/Resolved]
  - Vision blurred [Recovered/Resolved]
